FAERS Safety Report 7993918-4 (Version None)
Quarter: 2011Q4

REPORT INFORMATION
  Report Type: 
  Country: None (occurrence: None)
  Receive Date: 20111215
  Receipt Date: 20111129
  Transmission Date: 20120403
  Serious: Yes (Other)
  Sender: FDA-Public Use
  Company Number: FK201102871

PATIENT
  Age: 56 Year
  Sex: Male

DRUGS (2)
  1. FLUOROURACIL [Suspect]
     Indication: OESOPHAGEAL CARCINOMA
  2. CISPLATIN [Suspect]
     Indication: OESOPHAGEAL CARCINOMA

REACTIONS (4)
  - OESOPHAGEAL FISTULA [None]
  - NEOPLASM PROGRESSION [None]
  - OESOPHAGEAL CARCINOMA [None]
  - HAEMORRHAGE [None]
